FAERS Safety Report 5661447-9 (Version None)
Quarter: 2008Q1

REPORT INFORMATION
  Report Type: 
  Country: None (occurrence: None)
  Receive Date: 20080311
  Receipt Date: 20080228
  Transmission Date: 20080703
  Serious: Yes (Other)
  Sender: FDA-Public Use
  Company Number: US-PFIZER INC-2007033595

PATIENT
  Sex: Female
  Weight: 63.5 kg

DRUGS (6)
  1. LYRICA [Suspect]
     Indication: FACIAL PAIN
  2. LYRICA [Suspect]
     Indication: ORAL DISCOMFORT
  3. LYRICA [Suspect]
     Indication: NERVE INJURY
  4. OXYCODONE HCL [Concomitant]
  5. KLONOPIN [Concomitant]
     Indication: FACIAL PAIN
  6. SKELAXIN [Concomitant]

REACTIONS (14)
  - ABASIA [None]
  - ASTHENIA [None]
  - BALANCE DISORDER [None]
  - CHEST DISCOMFORT [None]
  - COORDINATION ABNORMAL [None]
  - DIZZINESS [None]
  - DRUG PRESCRIBING ERROR [None]
  - FATIGUE [None]
  - HANGOVER [None]
  - HEART RATE INCREASED [None]
  - MALAISE [None]
  - OEDEMA MOUTH [None]
  - PALPITATIONS [None]
  - SPEECH DISORDER [None]
